FAERS Safety Report 8957435 (Version 4)
Quarter: 2014Q3

REPORT INFORMATION
  Report Type: Report from Study
  Country: FR (occurrence: FR)
  Receive Date: 20121211
  Receipt Date: 20140718
  Transmission Date: 20150326
  Serious: Yes (Hospitalization)
  Sender: FDA-Public Use
  Company Number: PHHY2012FR112782

PATIENT
  Age: 88 Year
  Sex: Female
  Weight: 59 kg

DRUGS (8)
  1. HOMEOPATHIC PREPARATIONS [Concomitant]
     Dates: end: 2012
  2. ASPIRIN. [Concomitant]
     Active Substance: ASPIRIN
  3. KARDEGIC [Concomitant]
     Active Substance: ASPIRIN LYSINE
     Indication: ARTERITIS
  4. ACLASTA [Suspect]
     Active Substance: ZOLEDRONIC ACID
     Indication: OSTEOPOROTIC FRACTURE
     Dosage: 5 MG, UNK
     Route: 042
     Dates: start: 20111120
  5. ACLASTA [Suspect]
     Active Substance: ZOLEDRONIC ACID
     Indication: SPINAL COMPRESSION FRACTURE
  6. OPIAT [Concomitant]
     Active Substance: UNSPECIFIED INGREDIENT
     Dates: start: 2012
  7. OROCAL [Concomitant]
     Active Substance: CALCIUM CARBONATE
     Dates: start: 2012, end: 2012
  8. EFFERALGAN [Concomitant]
     Active Substance: ACETAMINOPHEN
     Dates: start: 2012, end: 2012

REACTIONS (4)
  - Injury [Unknown]
  - Ingrowing nail [Unknown]
  - Extremity necrosis [Not Recovered/Not Resolved]
  - Localised infection [Unknown]

NARRATIVE: CASE EVENT DATE: 201207
